FAERS Safety Report 4388571-5 (Version None)
Quarter: 2004Q2

REPORT INFORMATION
  Report Type: 
  Country: None (occurrence: None)
  Receive Date: 20040628
  Receipt Date: 20040617
  Transmission Date: 20050107
  Serious: Yes (Disabling)
  Sender: FDA-Public Use
  Company Number: 8252

PATIENT
  Age: 72 Year
  Sex: Female

DRUGS (3)
  1. AMIODARONE HCL [Suspect]
     Indication: ATRIAL FIBRILLATION
     Dosage: 1200 MG TOTAL IV
     Route: 042
     Dates: start: 20040602, end: 20040603
  2. METFORMIN [Concomitant]
  3. GLICLAZIDE [Concomitant]

REACTIONS (1)
  - THROMBOPHLEBITIS [None]
